FAERS Safety Report 8326834-9 (Version None)
Quarter: 2012Q2

REPORT INFORMATION
  Report Type: 
  Country: None (occurrence: None)
  Receive Date: 20120501
  Receipt Date: 20120425
  Transmission Date: 20120825
  Serious: Yes (Other)
  Sender: FDA-Public Use
  Company Number: AU-ABBOTT-12P-008-0929515-00

PATIENT
  Age: 32 Year
  Sex: Male

DRUGS (2)
  1. CLOZARIL [Suspect]
     Indication: SCHIZOPHRENIA
     Dosage: DAILY DOSE 50 MILLIGRAM(S); UNKNOWN
     Route: 048
     Dates: start: 19991110, end: 20120320
  2. VALPROATE SODIUM [Suspect]
     Indication: PRODUCT USED FOR UNKNOWN INDICATION
     Dosage: UNKNOWN
     Route: 065
     Dates: start: 20100101, end: 20120320

REACTIONS (3)
  - MENTAL DISORDER [None]
  - LEUKOPENIA [None]
  - NEUTROPENIA [None]
